FAERS Safety Report 8243860-9 (Version None)
Quarter: 2012Q1

REPORT INFORMATION
  Report Type: 
  Country: None (occurrence: None)
  Receive Date: 20120309
  Receipt Date: 20100831
  Transmission Date: 20120608
  Serious: Yes (Disabling, Other)
  Sender: FDA-Public Use
  Company Number: PHEH2010US01802

PATIENT
  Age: 42 Year
  Sex: Female

DRUGS (6)
  1. GOODY'S POWDER (ACETYLSALICYLIC ACID, CAFFEINE, CODEINE) [Concomitant]
  2. VITAMIN TAB [Concomitant]
  3. EXTAVIA [Suspect]
     Indication: MULTIPLE SCLEROSIS
     Dosage: 0.25 MG, QOD, SUBCUTANEOUS
     Route: 058
     Dates: start: 20100128
  4. VITAMIN B12 [Concomitant]
  5. IBUPROFEN [Concomitant]
  6. NEURONTIN [Concomitant]

REACTIONS (4)
  - DYSPHAGIA [None]
  - INJECTION SITE PAIN [None]
  - INFLUENZA LIKE ILLNESS [None]
  - MYALGIA [None]
